FAERS Safety Report 8462222-2 (Version None)
Quarter: 2012Q2

REPORT INFORMATION
  Report Type: 
  Country: None (occurrence: None)
  Receive Date: 20120625
  Receipt Date: 20120620
  Transmission Date: 20120825
  Serious: Yes (Death, Hospitalization, Other)
  Sender: FDA-Public Use
  Company Number: PHHY2011JP55946

PATIENT
  Sex: Male

DRUGS (27)
  1. SEREVENT [Concomitant]
     Dosage: 100 MG, UNK
     Route: 048
     Dates: start: 20090615, end: 20110201
  2. NIVADIL [Concomitant]
     Dosage: 8 MG, UNK
     Route: 048
     Dates: start: 20090615, end: 20110201
  3. GASCON [Concomitant]
     Dosage: 240 MG, UNK
     Route: 048
     Dates: start: 20090615, end: 20110201
  4. TAMSULOSIN HCL [Concomitant]
     Dosage: 0.2 MG, UNK
     Route: 048
     Dates: start: 20090615, end: 20110201
  5. SINGULAIR [Concomitant]
     Dosage: 10 MG, UNK
     Route: 048
     Dates: start: 20090615, end: 20110201
  6. GASCON [Concomitant]
     Dosage: 80 MG, UNK
     Dates: start: 20090615, end: 20110201
  7. ROHYPNOL [Concomitant]
     Dosage: 1 MG, UNK
     Route: 048
     Dates: start: 20090615, end: 20110201
  8. URIEF [Concomitant]
     Dosage: 4 MG, UNK
     Route: 048
     Dates: start: 20090913, end: 20110201
  9. LASIX [Concomitant]
     Dosage: 20 MG, UNK
     Route: 048
     Dates: start: 20090615, end: 20110201
  10. TASIGNA [Suspect]
     Indication: CHRONIC MYELOID LEUKAEMIA
     Dosage: 400 MG, DAILY
     Route: 048
     Dates: start: 20090516, end: 20090614
  11. TASIGNA [Suspect]
     Dosage: 400 MG, DAILY
     Route: 048
     Dates: start: 20090615, end: 20110124
  12. THEOLONG [Concomitant]
     Dosage: 600 MG, UNK
     Route: 048
  13. ALLOPURINOL [Concomitant]
     Dosage: 200 MG, UNK
     Route: 048
     Dates: start: 20090615, end: 20110201
  14. LEVOFLOXACIN [Concomitant]
     Dosage: 300 MG, UNK
     Route: 048
     Dates: start: 20090615, end: 20090620
  15. FLUTICASONE PROPIONATE [Concomitant]
     Dosage: 1600 UG, UNK
     Dates: start: 20090615, end: 20110201
  16. FLUOROMETHOLONE [Concomitant]
     Dosage: UNK
     Route: 047
     Dates: start: 20090615, end: 20110201
  17. ISODINE [Concomitant]
     Dosage: UNK
     Dates: start: 20100201, end: 20110201
  18. ASPARA [Concomitant]
     Dosage: 300 MG, UNK
     Route: 048
     Dates: start: 20090615, end: 20110201
  19. AIROMIR [Concomitant]
     Dosage: UNK
     Dates: start: 20090615
  20. GASMOTIN [Concomitant]
     Dosage: 10 MG, UNK
     Route: 048
     Dates: start: 20090615, end: 20110201
  21. ISOSORBIDE DINITRATE [Concomitant]
     Dosage: 60 MG, UNK
     Route: 048
     Dates: start: 20090615, end: 20110201
  22. ENALAPRIL MALEATE [Concomitant]
     Dosage: 5 MG, UNK
     Route: 048
     Dates: start: 20090615, end: 20110201
  23. ZANTAC [Concomitant]
     Dosage: 300 MG, UNK
     Route: 048
     Dates: start: 20090615, end: 20110201
  24. GASMOTIN [Concomitant]
     Dosage: 15 MG, UNK
     Route: 048
  25. PATANOL [Concomitant]
     Dosage: UNK
     Route: 047
     Dates: start: 20090615, end: 20110201
  26. MAGLAX [Concomitant]
     Dosage: 330 MG, UNK
     Route: 048
     Dates: start: 20090913, end: 20110201
  27. LIPITOR [Concomitant]
     Dosage: 10 MG, UNK
     Route: 048
     Dates: start: 20090615, end: 20110201

REACTIONS (4)
  - INJURY [None]
  - CEREBRAL INFARCTION [None]
  - PNEUMONIA [None]
  - EOSINOPHIL COUNT INCREASED [None]
